FAERS Safety Report 8449246-6 (Version None)
Quarter: 2012Q2

REPORT INFORMATION
  Report Type: 
  Country: None (occurrence: None)
  Receive Date: 20120613
  Receipt Date: 20120613
  Transmission Date: 20120825
  Serious: Yes (Hospitalization)
  Sender: FDA-Public Use
  Company Number: None

PATIENT
  Age: 63 Year
  Sex: Male
  Weight: 77.1 kg

DRUGS (1)
  1. ZOLPIDEM [Suspect]
     Dates: start: 20120214

REACTIONS (1)
  - HALLUCINATION [None]
